FAERS Safety Report 7282359-3 (Version None)
Quarter: 2011Q1

REPORT INFORMATION
  Report Type: 
  Country: None (occurrence: None)
  Receive Date: 20110209
  Receipt Date: 20110126
  Transmission Date: 20110831
  Serious: Yes (Hospitalization, Other)
  Sender: FDA-Public Use
  Company Number: PT-RANBAXY-2010RR-40958

PATIENT
  Sex: Female
  Weight: 2.325 kg

DRUGS (2)
  1. LISINOPRIL [Suspect]
     Dosage: 10 MG, UNK
     Route: 015
  2. METHYLDOPA [Concomitant]
     Dosage: 500 MG, UNK
     Route: 015

REACTIONS (10)
  - HYPERNATRAEMIA [None]
  - RENAL FAILURE [None]
  - DRUG EXPOSURE DURING PREGNANCY [None]
  - DYSMORPHISM [None]
  - FONTANELLE DEPRESSED [None]
  - PREMATURE BABY [None]
  - MICROCEPHALY [None]
  - POLYDIPSIA [None]
  - ANTIDIURETIC HORMONE ABNORMALITY [None]
  - HYPERTONIA [None]
